FAERS Safety Report 6025003-5 (Version None)
Quarter: 2008Q4

REPORT INFORMATION
  Report Type: 
  Country: None (occurrence: None)
  Receive Date: 20081231
  Receipt Date: 20081219
  Transmission Date: 20090506
  Serious: No
  Sender: FDA-Public Use
  Company Number: US-ELI_LILLY_AND_COMPANY-US200812005054

PATIENT
  Sex: Female

DRUGS (2)
  1. CYMBALTA [Suspect]
     Indication: DEPRESSION
     Dosage: 60 MG, DAILY (1/D)
     Dates: start: 20070101
  2. NORVASC [Concomitant]

REACTIONS (11)
  - BLOOD CHOLESTEROL INCREASED [None]
  - BLOOD TRIGLYCERIDES INCREASED [None]
  - CRYING [None]
  - DIABETES MELLITUS [None]
  - HEPATIC ENZYME INCREASED [None]
  - HYPERTENSION [None]
  - LOSS OF EMPLOYMENT [None]
  - MALAISE [None]
  - MENTAL DISORDER [None]
  - MIGRAINE [None]
  - WEIGHT DECREASED [None]
